FAERS Safety Report 8410019-1 (Version None)
Quarter: 2012Q2

REPORT INFORMATION
  Report Type: 
  Country: None (occurrence: None)
  Receive Date: 20120529
  Receipt Date: 20050120
  Transmission Date: 20120825
  Serious: Yes (Hospitalization)
  Sender: FDA-Public Use
  Company Number: 15691-USA-05-0158

PATIENT
  Age: 53 Year
  Sex: Male

DRUGS (14)
  1. LASIX [Concomitant]
  2. COREG [Concomitant]
  3. CELEXA [Concomitant]
  4. LISINOPRIL [Concomitant]
  5. DIGOXIN [Concomitant]
  6. COUMADIN [Concomitant]
  7. MAG-OXIDE (MAGNESIUM OXIDE) [Concomitant]
  8. TOLVAPTAN (TOLVAPTAN) TABLET, 15MG [Suspect]
     Indication: HYPONATRAEMIA
     Dosage: 15 MG, QD, ORAL
     Route: 048
     Dates: start: 20041220
  9. MILRINONE LACTATE [Concomitant]
  10. ALBUTEROL [Concomitant]
  11. ASPIRIN [Concomitant]
  12. PROTONIX ^WYETH-AYERST^ (PANTOPRAZOLE SODIUM) [Concomitant]
  13. AMBIEN [Concomitant]
  14. ATROVENT [Concomitant]

REACTIONS (5)
  - RENAL FAILURE ACUTE [None]
  - HAEMATOCRIT DECREASED [None]
  - DIARRHOEA [None]
  - DEHYDRATION [None]
  - HAEMOGLOBIN DECREASED [None]
